FAERS Safety Report 5677368-1 (Version None)
Quarter: 2008Q1

REPORT INFORMATION
  Report Type: 
  Country: None (occurrence: None)
  Receive Date: 20080324
  Receipt Date: 20080312
  Transmission Date: 20080703
  Serious: Yes (Other)
  Sender: FDA-Public Use
  Company Number: IL-PFIZER INC-2008022807

PATIENT
  Age: 70 Year
  Sex: Male

DRUGS (2)
  1. GEODON [Suspect]
  2. ANTI-PARKINSON AGENTS [Concomitant]

REACTIONS (1)
  - PARKINSON'S DISEASE [None]
